FAERS Safety Report 7090083-5 (Version None)
Quarter: 2010Q4

REPORT INFORMATION
  Report Type: 
  Country: None (occurrence: None)
  Receive Date: 20101105
  Receipt Date: 20101105
  Transmission Date: 20110411
  Serious: Yes (Life-Threatening, Disabling, Other)
  Sender: FDA-Public Use
  Company Number: None

PATIENT
  Age: 70 Year
  Sex: Male
  Weight: 95.2554 kg

DRUGS (5)
  1. DILTIAZEM [Suspect]
     Indication: HYPERTENSION
     Dosage: 240 MG 1 DAY
     Dates: start: 20080407, end: 20081001
  2. LOPRESSOR [Suspect]
     Indication: HYPERTENSION
     Dosage: 1 DAY
     Dates: start: 19960313, end: 19960320
  3. LISINOPRIL [Concomitant]
  4. AMLODIPINE BESYLATE [Concomitant]
  5. VARSARTAN [Concomitant]

REACTIONS (18)
  - AGEUSIA [None]
  - COUGH [None]
  - DECREASED ACTIVITY [None]
  - DIZZINESS [None]
  - ERYTHEMA [None]
  - FATIGUE [None]
  - HEADACHE [None]
  - HYPERHIDROSIS [None]
  - HYPOAESTHESIA [None]
  - PAIN [None]
  - PARAESTHESIA [None]
  - PRURITUS [None]
  - RADIAL PULSE [None]
  - RASH ERYTHEMATOUS [None]
  - SKIN DISCOLOURATION [None]
  - SKIN OEDEMA [None]
  - SWELLING [None]
  - URTICARIA [None]
